FAERS Safety Report 4897677-3 (Version None)
Quarter: 2006Q1

REPORT INFORMATION
  Report Type: 
  Country: None (occurrence: None)
  Receive Date: 20060130
  Receipt Date: 20060119
  Transmission Date: 20060701
  Serious: Yes (Hospitalization, Other)
  Sender: FDA-Public Use
  Company Number: 2005172452

PATIENT
  Sex: Female
  Weight: 83.9154 kg

DRUGS (2)
  1. DILANTIN [Suspect]
     Indication: CONVULSION
     Dosage: 300 MG (300 MG, 1 IN 1 D), UNKNOWN
     Route: 065
     Dates: start: 19820801, end: 20050101
  2. PHENYTOIN [Suspect]
     Indication: CONVULSION
     Dosage: 300 MG (300 MG,1 IN 1 D), UNKNOWN
     Route: 065
     Dates: start: 20050101

REACTIONS (10)
  - ANGIOPATHY [None]
  - ANKLE FRACTURE [None]
  - CONTUSION [None]
  - CONVULSION [None]
  - INCISION SITE COMPLICATION [None]
  - OEDEMA PERIPHERAL [None]
  - OPEN WOUND [None]
  - OSTEOPOROSIS [None]
  - PERIPHERAL VASCULAR DISORDER [None]
  - ULCER [None]
